FAERS Safety Report 5085595-X (Version None)
Quarter: 2006Q3

REPORT INFORMATION
  Report Type: 
  Country: None (occurrence: None)
  Receive Date: 20060822
  Receipt Date: 20060627
  Transmission Date: 20061208
  Serious: Yes (Other)
  Sender: FDA-Public Use
  Company Number: GB-GLAXOSMITHKLINE-B0428988A

PATIENT
  Sex: Male

DRUGS (3)
  1. LAMICTAL [Suspect]
     Indication: SECONDARY PROGRESSIVE MULTIPLE SCLEROSIS
     Dates: start: 20051201
  2. AIMSPRO [Suspect]
     Indication: DISEASE PROGRESSION
     Dates: start: 20060501
  3. AIMSPRO [Suspect]
     Indication: MULTIPLE SCLEROSIS
     Dates: start: 20060501

REACTIONS (8)
  - CONDITION AGGRAVATED [None]
  - DRUG INEFFECTIVE [None]
  - DRUG INTERACTION [None]
  - DYSPHAGIA [None]
  - GENERAL PHYSICAL HEALTH DETERIORATION [None]
  - MULTIPLE SCLEROSIS [None]
  - OFF LABEL USE [None]
  - SPEECH DISORDER [None]
